FAERS Safety Report 24910982 (Version 3)
Quarter: 2025Q1

REPORT INFORMATION
  Report Type: Spontaneous
  Country: US (occurrence: US)
  Receive Date: 20250131
  Receipt Date: 20250228
  Transmission Date: 20250409
  Serious: Yes (Hospitalization, Other)
  Sender: Day One Biopharmaceuticals
  Company Number: US-Day One Biopharmaceuticals Inc.-2025US000147

PATIENT

DRUGS (1)
  1. OJEMDA [Suspect]
     Active Substance: TOVORAFENIB
     Indication: Glioma
     Route: 065
     Dates: start: 20231031

REACTIONS (1)
  - Intracranial tumour haemorrhage [Unknown]

NARRATIVE: CASE EVENT DATE: 20241222
